FAERS Safety Report 5530821-3 (Version None)
Quarter: 2007Q4

REPORT INFORMATION
  Report Type: 
  Country: None (occurrence: None)
  Receive Date: 20071130
  Receipt Date: 20071120
  Transmission Date: 20080405
  Serious: Yes (Other)
  Sender: FDA-Public Use
  Company Number: US-JNJFOC-20071108222

PATIENT
  Sex: Male
  Weight: 109.32 kg

DRUGS (4)
  1. FENTANYL TRANSDERMAL SYSTEM [Suspect]
     Indication: BACK PAIN
     Route: 062
  2. FENTANYL TRANSDERMAL SYSTEM [Suspect]
     Route: 062
  3. FENTANYL TRANSDERMAL SYSTEM [Suspect]
     Indication: BACK PAIN
     Route: 062
  4. SUGAR PILL [Concomitant]
     Indication: BLOOD GLUCOSE DECREASED
     Dosage: TABLET TAKEN AS NEEDED
     Route: 048

REACTIONS (8)
  - APPLICATION SITE RASH [None]
  - ARTHRITIS [None]
  - BACK PAIN [None]
  - DRUG ADMINISTERED AT INAPPROPRIATE SITE [None]
  - INAPPROPRIATE SCHEDULE OF DRUG ADMINISTRATION [None]
  - INTERVERTEBRAL DISC DISORDER [None]
  - WEIGHT DECREASED [None]
  - WITHDRAWAL SYNDROME [None]
